FAERS Safety Report 23679396 (Version 2)
Quarter: 2024Q2

REPORT INFORMATION
  Report Type: Spontaneous
  Country: HU (occurrence: HU)
  Receive Date: 20240327
  Receipt Date: 20240422
  Transmission Date: 20240715
  Serious: Yes (Other)
  Sender: FDA-Public Use
  Company Number: HU-NOVOPROD-1181734

PATIENT
  Age: 24 Year
  Sex: Male
  Weight: 75 kg

DRUGS (12)
  1. ESPEROCT [Suspect]
     Active Substance: ANTIHEMOPHILIC FACTOR, HUMAN RECOMBINANT
     Indication: Prophylaxis
     Dosage: 6000 IU EVERY 4 DAYS
     Route: 042
     Dates: start: 20200801, end: 20230909
  2. ESPEROCT [Suspect]
     Active Substance: ANTIHEMOPHILIC FACTOR, HUMAN RECOMBINANT
     Dosage: 5000 IU EVERY 5 DAYS
     Route: 042
     Dates: start: 20230912
  3. ESPEROCT [Suspect]
     Active Substance: ANTIHEMOPHILIC FACTOR, HUMAN RECOMBINANT
     Indication: Haemophilia
     Dosage: 5000IU  EVERY 4 DAY
     Route: 042
     Dates: start: 20200103, end: 20200729
  4. LEVOFLOXACIN [Concomitant]
     Active Substance: LEVOFLOXACIN
     Dosage: 500 MG P.O 1X1
     Dates: start: 20220803
  5. LEVOFLOXACIN [Concomitant]
     Active Substance: LEVOFLOXACIN
     Dosage: 500 MG P.O 1X1
     Dates: start: 20220928
  6. SULFAMETHOXAZOLE\TRIMETHOPRIM [Concomitant]
     Active Substance: SULFAMETHOXAZOLE\TRIMETHOPRIM
     Dosage: P.O 2X1
     Dates: start: 20220803
  7. SULFAMETHOXAZOLE\TRIMETHOPRIM [Concomitant]
     Active Substance: SULFAMETHOXAZOLE\TRIMETHOPRIM
     Dosage: P.O 2X2
     Dates: start: 20220928
  8. LEVOFLOXACIN HEMIHYDRATE [Concomitant]
     Active Substance: LEVOFLOXACIN
     Dosage: 500 MG P.O. 1X1
     Dates: start: 20231005, end: 20231012
  9. SUFIXIN FORTE [Concomitant]
     Dosage: 400 MG P. O. 1X1
     Dates: start: 20231226
  10. PANCRELIPASE [Concomitant]
     Active Substance: PANCRELIPASE
     Dosage: UNK
  11. PANCRELIPASE [Concomitant]
     Active Substance: PANCRELIPASE
     Dosage: UNK
  12. VITAMIN C [Concomitant]
     Active Substance: ASCORBIC ACID
     Dosage: UNK

REACTIONS (4)
  - Pancreatic failure [Unknown]
  - Prostatitis [Not Recovered/Not Resolved]
  - Condition aggravated [Not Recovered/Not Resolved]
  - Histamine intolerance [Not Recovered/Not Resolved]

NARRATIVE: CASE EVENT DATE: 20210901
